FAERS Safety Report 5869456-1 (Version None)
Quarter: 2008Q3

REPORT INFORMATION
  Report Type: 
  Country: None (occurrence: None)
  Receive Date: 20080829
  Receipt Date: 20080815
  Transmission Date: 20090109
  Serious: No
  Sender: FDA-Public Use
  Company Number: DSU-2008-01275

PATIENT
  Age: 67 Year
  Sex: Female
  Weight: 73.4827 kg

DRUGS (4)
  1. WELCHOL [Suspect]
     Indication: HYPERLIPIDAEMIA
     Dosage: 2500 MG (1250 MG, BID), PER ORAL
     Route: 048
     Dates: start: 20080601, end: 20080808
  2. JANUMET [Suspect]
     Indication: TYPE 2 DIABETES MELLITUS
     Dosage: PER ORAL
     Route: 048
     Dates: start: 20080601, end: 20080813
  3. GLIPMET (METFORMIN HYDROCHLORIDE, GLIPIZIDE) (TABLET) (METFORMIN HYDRO [Suspect]
     Indication: TYPE 2 DIABETES MELLITUS
     Dosage: PER ORAL
     Route: 048
     Dates: start: 20070101, end: 20080601
  4. NEXIUM [Suspect]
     Indication: GASTROOESOPHAGEAL REFLUX DISEASE
     Dosage: PER ORAL
     Route: 048
     Dates: start: 20080801, end: 20080801

REACTIONS (12)
  - BLOOD GLUCOSE DECREASED [None]
  - DRUG ADMINISTRATION ERROR [None]
  - GASTROOESOPHAGEAL REFLUX DISEASE [None]
  - INFLUENZA LIKE ILLNESS [None]
  - LACRIMATION INCREASED [None]
  - MALAISE [None]
  - MULTIPLE ALLERGIES [None]
  - NAUSEA [None]
  - OFF LABEL USE [None]
  - SNEEZING [None]
  - VIRAL INFECTION [None]
  - WRONG TECHNIQUE IN DRUG USAGE PROCESS [None]
